FAERS Safety Report 14900579 (Version 4)
Quarter: 2018Q4

REPORT INFORMATION
  Report Type: Spontaneous
  Country: US (occurrence: US)
  Receive Date: 20180516
  Receipt Date: 20181212
  Transmission Date: 20190204
  Serious: Yes (Hospitalization, Other)
  Sender: FDA-Public Use
  Company Number: US-PFIZER INC-2018197168

PATIENT
  Age: 67 Year
  Sex: Female
  Weight: 87.98 kg

DRUGS (2)
  1. SUTENT [Suspect]
     Active Substance: SUNITINIB MALATE
     Indication: RENAL CELL CARCINOMA
     Dosage: 50 MG, CYCLIC (DAYS 1-28 Q42 DAYS)
     Route: 048
     Dates: start: 20180506, end: 201806
  2. SUTENT [Suspect]
     Active Substance: SUNITINIB MALATE
     Indication: RENAL CANCER

REACTIONS (5)
  - Productive cough [Unknown]
  - Secretion discharge [Unknown]
  - Vomiting [Unknown]
  - Fatigue [Unknown]
  - Dehydration [Unknown]

NARRATIVE: CASE EVENT DATE: 201805
